FAERS Safety Report 6838741 (Version 5)
Quarter: 2013Q1

REPORT INFORMATION
  Report Type: Spontaneous
  Country: US (occurrence: US)
  Receive Date: 20081209
  Receipt Date: 20130308
  Transmission Date: 20140127
  Serious: Yes (Hospitalization)
  Sender: FDA-Public Use
  Company Number: US-BIOGENIDEC-2008BI032408

PATIENT
  Age: 66 Year
  Sex: Female

DRUGS (7)
  1. AVONEX [Suspect]
     Indication: MULTIPLE SCLEROSIS
     Route: 030
     Dates: start: 200207, end: 200309
  2. AVONEX [Suspect]
     Indication: MULTIPLE SCLEROSIS
     Route: 030
     Dates: start: 200309, end: 200505
  3. AVONEX [Suspect]
     Indication: MULTIPLE SCLEROSIS
     Route: 030
     Dates: end: 20060629
  4. AVONEX [Suspect]
     Indication: MULTIPLE SCLEROSIS
     Route: 030
     Dates: start: 20070929
  5. AVONEX [Suspect]
     Indication: MULTIPLE SCLEROSIS
     Route: 030
     Dates: start: 20071029, end: 201212
  6. HYDROCODONE [Concomitant]
     Indication: BACK PAIN
  7. PEPCID [Concomitant]

REACTIONS (18)
  - Coordination abnormal [Unknown]
  - Laceration [Recovered/Resolved]
  - Renal failure chronic [Unknown]
  - Dementia [Unknown]
  - Fall [Recovered/Resolved]
  - Head injury [Unknown]
  - Rib fracture [Recovered/Resolved]
  - Cystitis [Recovered/Resolved]
  - Synovial cyst [Recovered/Resolved]
  - Convulsion [Recovered/Resolved]
  - Multiple sclerosis relapse [Recovered/Resolved]
  - Weight decreased [Unknown]
  - Visual impairment [Unknown]
  - Restless legs syndrome [Unknown]
  - Back pain [Recovered/Resolved]
  - Hypotension [Unknown]
  - Abdominal discomfort [Not Recovered/Not Resolved]
  - Hypertension [Unknown]
